FAERS Safety Report 17515212 (Version 1)
Quarter: 2020Q1

REPORT INFORMATION
  Report Type: Spontaneous
  Country: NL (occurrence: NL)
  Receive Date: 20200309
  Receipt Date: 20200309
  Transmission Date: 20200409
  Serious: Yes (Other)
  Sender: FDA-Public Use
  Company Number: NL-ACCORD-174283

PATIENT
  Sex: Male

DRUGS (2)
  1. CAD 500 WILLPHARMA [Suspect]
     Active Substance: CALCIUM CARBONATE\CHOLECALCIFEROL
  2. ROSUVASTATIN CALCIUM ACCORD [Suspect]
     Active Substance: ROSUVASTATIN CALCIUM
     Indication: PRODUCT USED FOR UNKNOWN INDICATION

REACTIONS (2)
  - Tinnitus [Unknown]
  - Deafness [Unknown]
